FAERS Safety Report 10249248 (Version 2)
Quarter: 2014Q2

REPORT INFORMATION
  Report Type: Report from Study
  Country: FR (occurrence: FR)
  Receive Date: 20140620
  Receipt Date: 20140625
  Transmission Date: 20141212
  Serious: Yes (Death)
  Sender: FDA-Public Use
  Company Number: FR-VERTEX PHARMACEUTICALS (CANADA)-2014-002784

PATIENT
  Age: 63 Year
  Sex: Female

DRUGS (3)
  1. VX-950 (TELAPREVIR) [Suspect]
     Indication: HEPATITIS C
     Dosage: 750 MG, TID
     Route: 065
     Dates: start: 20110701, end: 20110923
  2. RIBAVIRIN [Suspect]
     Indication: HEPATITIS C
     Dosage: 1000 MG, QD
     Route: 065
     Dates: start: 20110701, end: 20120206
  3. PEGASYS [Suspect]
     Indication: HEPATITIS C
     Dosage: 180 ?G, QW
     Route: 065
     Dates: start: 20110701, end: 20120206

REACTIONS (1)
  - Hepatic failure [Fatal]
